FAERS Safety Report 8595763-8 (Version None)
Quarter: 2012Q3

REPORT INFORMATION
  Report Type: 
  Country: None (occurrence: None)
  Receive Date: 20120815
  Receipt Date: 20120809
  Transmission Date: 20120928
  Serious: No
  Sender: FDA-Public Use
  Company Number: US-ELI_LILLY_AND_COMPANY-US201110004550

PATIENT
  Age: 28 Year
  Sex: Male

DRUGS (2)
  1. AXIRON [Suspect]
     Indication: BLOOD TESTOSTERONE DECREASED
     Dosage: 60 MG, UNKNOWN
     Dates: start: 20110901
  2. TESTOSTERONE [Concomitant]
     Dosage: UNK, UNKNOWN

REACTIONS (3)
  - SKIN BURNING SENSATION [None]
  - MUSCLE STRAIN [None]
  - TENDON INJURY [None]
